FAERS Safety Report 7457890-8 (Version None)
Quarter: 2011Q2

REPORT INFORMATION
  Report Type: 
  Country: None (occurrence: None)
  Receive Date: 20110504
  Receipt Date: 20110420
  Transmission Date: 20111010
  Serious: Yes (Other)
  Sender: FDA-Public Use
  Company Number: JP-JNJFOC-20110401155

PATIENT
  Sex: Male
  Weight: 53 kg

DRUGS (11)
  1. ALDACTONE [Concomitant]
     Indication: HYPERTENSION
     Route: 048
  2. TPN ELECTROLYTES IN PLASTIC CONTAINER [Concomitant]
     Route: 065
  3. GLYCYRON [Concomitant]
     Indication: HEPATITIS C
     Dosage: 6 DF, ONCE A DAY
     Route: 048
  4. OXYCODONE HCL [Suspect]
     Route: 065
  5. HALCION [Concomitant]
     Indication: INSOMNIA
     Route: 048
  6. OXYCODONE HCL [Suspect]
     Indication: PRODUCT USED FOR UNKNOWN INDICATION
     Route: 065
  7. GASMOTIN [Concomitant]
     Indication: GASTRITIS
     Route: 048
  8. MAGMITT [Concomitant]
     Indication: CONSTIPATION
     Route: 048
  9. GASTER D [Concomitant]
     Indication: GASTRITIS
     Route: 048
  10. DUROTEP MT [Suspect]
     Indication: CANCER PAIN
     Route: 062
  11. MUCOSTA [Concomitant]
     Indication: GASTRITIS
     Dosage: 3 DF, ONCE A DAY
     Route: 048

REACTIONS (2)
  - MEDICATION ERROR [None]
  - DELIRIUM [None]
